FAERS Safety Report 8501347-X (Version None)
Quarter: 2012Q3

REPORT INFORMATION
  Report Type: 
  Country: None (occurrence: None)
  Receive Date: 20120710
  Receipt Date: 20120628
  Transmission Date: 20120928
  Serious: Yes (Other)
  Sender: FDA-Public Use
  Company Number: US-US-EMD SERONO, INC.-7144455

PATIENT
  Sex: Female

DRUGS (2)
  1. REBIF [Suspect]
     Indication: PRODUCT USED FOR UNKNOWN INDICATION
     Dates: start: 20081201, end: 20090327
  2. REBIF [Suspect]
     Route: 058
     Dates: start: 20120215

REACTIONS (4)
  - CROHN'S DISEASE [None]
  - ARTHRITIS ENTEROPATHIC [None]
  - INTERVERTEBRAL DISC PROTRUSION [None]
  - FEELING ABNORMAL [None]
